FAERS Safety Report 9233573 (Version 1)
Quarter: 2013Q2

REPORT INFORMATION
  Report Type: Spontaneous
  Country: US (occurrence: US)
  Receive Date: 20130416
  Receipt Date: 20130416
  Transmission Date: 20140414
  Serious: No
  Sender: FDA-Public Use
  Company Number: US-BANPHARM-20120354

PATIENT
  Age: 53 Year
  Sex: Female
  Weight: 125 kg

DRUGS (4)
  1. ALEVE LIQUID GELS 220 MG [Suspect]
     Indication: ARTHRITIS
     Dosage: 3 DF, BID,
     Route: 048
  2. LISINOPRIL [Concomitant]
  3. LASIX [Concomitant]
  4. GENERIC FISH OIL [Concomitant]

REACTIONS (2)
  - Paraesthesia oral [Recovered/Resolved]
  - Incorrect dose administered [Unknown]
